FAERS Safety Report 6158345-3 (Version None)
Quarter: 2009Q2

REPORT INFORMATION
  Report Type: 
  Country: None (occurrence: None)
  Receive Date: 20090417
  Receipt Date: 20070629
  Transmission Date: 20091009
  Serious: Yes (Hospitalization)
  Sender: FDA-Public Use
  Company Number: US-ASTRAZENECA-2006UW25069

PATIENT
  Age: 20265 Day
  Sex: Female
  Weight: 84.8 kg

DRUGS (19)
  1. SEROQUEL [Suspect]
     Indication: SLEEP DISORDER
     Dosage: 25 MG, 300 MG
     Route: 048
     Dates: start: 20050101, end: 20060101
  2. SEROQUEL [Suspect]
     Indication: DEPRESSION
     Dosage: 25 MG, 300 MG
     Route: 048
     Dates: start: 20050101, end: 20060101
  3. SEROQUEL [Suspect]
     Dosage: 50-300 MG
     Route: 048
     Dates: start: 20040122
  4. SEROQUEL [Suspect]
     Dosage: 50-300 MG
     Route: 048
     Dates: start: 20040122
  5. ZYPREXA [Suspect]
     Dates: start: 20050101
  6. ABILIFY [Concomitant]
     Dates: start: 20050101
  7. THORAZINE [Concomitant]
     Dates: start: 19740101
  8. EFFEXOR XR [Concomitant]
  9. PROZAC [Concomitant]
  10. LEXAPRO [Concomitant]
  11. PAXIL [Concomitant]
  12. METRONIDAZOLE [Concomitant]
  13. MOTRIN [Concomitant]
  14. QUININE SULFATE [Concomitant]
  15. TOPROL-XL [Concomitant]
  16. ANTIVERT [Concomitant]
  17. LOTENSIN [Concomitant]
  18. ASPIRIN [Concomitant]
  19. ALBUTEROL SULFATE [Concomitant]

REACTIONS (11)
  - ARTHRALGIA [None]
  - BORDERLINE PERSONALITY DISORDER [None]
  - DYSURIA [None]
  - GASTROENTERITIS [None]
  - HAEMATURIA [None]
  - HYPERGLYCAEMIA [None]
  - MAJOR DEPRESSION [None]
  - UPPER RESPIRATORY TRACT INFECTION [None]
  - VAGINITIS BACTERIAL [None]
  - VERTIGO [None]
  - VOCAL CORD POLYP [None]
